FAERS Safety Report 19289317 (Version 2)
Quarter: 2022Q1

REPORT INFORMATION
  Report Type: Report from Study
  Country: US (occurrence: US)
  Receive Date: 20210522
  Receipt Date: 20220214
  Transmission Date: 20220423
  Serious: Yes (Other)
  Sender: FDA-Public Use
  Company Number: US-TAKEDA-2021TUS032390

PATIENT
  Age: 61 Year
  Sex: Female

DRUGS (1)
  1. HUMAN IMMUNOGLOBULIN G [Suspect]
     Active Substance: HUMAN IMMUNOGLOBULIN G
     Indication: Hypogammaglobulinaemia
     Route: 065

REACTIONS (3)
  - Spinal operation [Recovered/Resolved]
  - Pneumonia [Recovering/Resolving]
  - Lichen sclerosus [Unknown]

NARRATIVE: CASE EVENT DATE: 20200801
